FAERS Safety Report 21967985 (Version 1)
Quarter: 2023Q1

REPORT INFORMATION
  Report Type: Spontaneous
  Country: US (occurrence: US)
  Receive Date: 20230208
  Receipt Date: 20230208
  Transmission Date: 20230417
  Serious: Yes (Other)
  Sender: FDA-Public Use
  Company Number: US-002147023-NVSC2023US024740

PATIENT
  Age: 61 Year
  Sex: Male

DRUGS (6)
  1. DABRAFENIB [Suspect]
     Active Substance: DABRAFENIB
     Indication: Plasma cell myeloma refractory
     Dosage: 100 MG, BID (FROM DAY 1519)
     Route: 048
  2. DABRAFENIB [Suspect]
     Active Substance: DABRAFENIB
     Dosage: 150 MG, BID
     Route: 048
  3. TRAMETINIB [Suspect]
     Active Substance: TRAMETINIB
     Indication: Plasma cell myeloma refractory
     Dosage: 1.5 MG, QD FOR 21/28 DAYS (FROM DAY 1519)
     Route: 048
  4. TRAMETINIB [Suspect]
     Active Substance: TRAMETINIB
     Dosage: 2 MG, QD
     Route: 048
  5. REGORAFENIB [Suspect]
     Active Substance: REGORAFENIB
     Indication: Plasma cell myeloma refractory
     Dosage: 40 MG, QD (FROM DAY 1519)
     Route: 048
  6. REGORAFENIB [Suspect]
     Active Substance: REGORAFENIB
     Dosage: 80 MG, QD
     Route: 048

REACTIONS (5)
  - Plasma cell myeloma [Unknown]
  - Malignant neoplasm progression [Unknown]
  - Fatigue [Unknown]
  - Therapy non-responder [Unknown]
  - Product use in unapproved indication [Unknown]
